FAERS Safety Report 7712465-8 (Version None)
Quarter: 2011Q3

REPORT INFORMATION
  Report Type: 
  Country: None (occurrence: None)
  Receive Date: 20110823
  Receipt Date: 20110809
  Transmission Date: 20111222
  Serious: Yes (Other)
  Sender: FDA-Public Use
  Company Number: 2011002040

PATIENT
  Age: 79 Year
  Sex: Male
  Weight: 53 kg

DRUGS (5)
  1. TARCEVA [Suspect]
     Indication: NON-SMALL CELL LUNG CANCER
     Dosage: 150 MG, UID/QD, ORAL 100 MG, UID/QD, ORAL
     Route: 048
     Dates: start: 20110428
  2. TARCEVA [Suspect]
     Indication: NON-SMALL CELL LUNG CANCER
     Dosage: 150 MG, UID/QD, ORAL 100 MG, UID/QD, ORAL
     Route: 048
     Dates: start: 20110401, end: 20110726
  3. MULTI VITAMIN (MULTIPLE VITAMINS) [Concomitant]
  4. FLOMAX [Concomitant]
  5. PROAIR HFA (SALBUTAMOL) [Concomitant]

REACTIONS (12)
  - RASH [None]
  - DIZZINESS [None]
  - DYSPNOEA [None]
  - NON-SMALL CELL LUNG CANCER [None]
  - DECREASED APPETITE [None]
  - METASTASES TO SPINE [None]
  - DIARRHOEA [None]
  - BLOOD SODIUM DECREASED [None]
  - NEOPLASM PROGRESSION [None]
  - LYMPHOPENIA [None]
  - FATIGUE [None]
  - HAEMOGLOBIN DECREASED [None]
